FAERS Safety Report 16770485 (Version 3)
Quarter: 2019Q4

REPORT INFORMATION
  Report Type: Report from Study
  Country: JP (occurrence: JP)
  Receive Date: 20190904
  Receipt Date: 20191015
  Transmission Date: 20200122
  Serious: Yes (Other)
  Sender: FDA-Public Use
  Company Number: JP-JNJFOC-20190714188

PATIENT
  Age: 72 Year
  Sex: Male
  Weight: 71 kg

DRUGS (26)
  1. LENALIDOMIDE [Suspect]
     Active Substance: LENALIDOMIDE
     Route: 048
     Dates: start: 20180520, end: 20190214
  2. DARZALEX [Suspect]
     Active Substance: DARATUMUMAB
     Route: 041
     Dates: start: 20180413, end: 20180413
  3. DARZALEX [Suspect]
     Active Substance: DARATUMUMAB
     Route: 041
     Dates: start: 20180427, end: 20180427
  4. LENALIDOMIDE [Suspect]
     Active Substance: LENALIDOMIDE
     Indication: PLASMA CELL MYELOMA
     Route: 048
     Dates: start: 20180216, end: 20180308
  5. DEXAMETHASONE. [Concomitant]
     Active Substance: DEXAMETHASONE
     Route: 065
     Dates: start: 20180406, end: 20180406
  6. DARZALEX [Suspect]
     Active Substance: DARATUMUMAB
     Route: 041
     Dates: start: 20180302, end: 20180302
  7. DEXAMETHASONE. [Concomitant]
     Active Substance: DEXAMETHASONE
     Indication: PLASMA CELL MYELOMA
     Route: 065
     Dates: start: 20180216, end: 20180217
  8. DEXAMETHASONE. [Concomitant]
     Active Substance: DEXAMETHASONE
     Route: 065
     Dates: start: 20180309, end: 20180310
  9. DEXAMETHASONE. [Concomitant]
     Active Substance: DEXAMETHASONE
     Route: 065
     Dates: start: 20180525, end: 20190125
  10. DARZALEX [Suspect]
     Active Substance: DARATUMUMAB
     Route: 041
     Dates: start: 20180223, end: 20180223
  11. DARZALEX [Suspect]
     Active Substance: DARATUMUMAB
     Route: 041
     Dates: start: 20180330, end: 20180330
  12. LENALIDOMIDE [Suspect]
     Active Substance: LENALIDOMIDE
     Route: 048
     Dates: start: 20180316, end: 20180405
  13. DEXAMETHASONE. [Concomitant]
     Active Substance: DEXAMETHASONE
     Route: 065
     Dates: start: 20180330, end: 20180330
  14. DARZALEX [Suspect]
     Active Substance: DARATUMUMAB
     Route: 041
     Dates: start: 20180511, end: 20190125
  15. DEXAMETHASONE. [Concomitant]
     Active Substance: DEXAMETHASONE
     Route: 065
     Dates: start: 20180302, end: 20180303
  16. DEXAMETHASONE. [Concomitant]
     Active Substance: DEXAMETHASONE
     Route: 065
     Dates: start: 20180413, end: 20180413
  17. DARZALEX [Suspect]
     Active Substance: DARATUMUMAB
     Route: 041
     Dates: start: 20180316, end: 20180316
  18. DARZALEX [Suspect]
     Active Substance: DARATUMUMAB
     Route: 041
     Dates: start: 20180323, end: 20180323
  19. DARZALEX [Suspect]
     Active Substance: DARATUMUMAB
     Route: 041
     Dates: start: 20180406, end: 20180406
  20. LENALIDOMIDE [Suspect]
     Active Substance: LENALIDOMIDE
     Route: 048
     Dates: start: 20180413, end: 20180503
  21. DEXAMETHASONE. [Concomitant]
     Active Substance: DEXAMETHASONE
     Route: 065
     Dates: start: 20180223, end: 20180224
  22. DEXAMETHASONE. [Concomitant]
     Active Substance: DEXAMETHASONE
     Route: 065
     Dates: start: 20180323, end: 20180323
  23. DARZALEX [Suspect]
     Active Substance: DARATUMUMAB
     Indication: PLASMA CELL MYELOMA
     Route: 041
     Dates: start: 20180216, end: 20180216
  24. DARZALEX [Suspect]
     Active Substance: DARATUMUMAB
     Route: 041
     Dates: start: 20180309, end: 20180309
  25. DEXAMETHASONE. [Concomitant]
     Active Substance: DEXAMETHASONE
     Route: 065
     Dates: start: 20180316, end: 20180317
  26. DEXAMETHASONE. [Concomitant]
     Active Substance: DEXAMETHASONE
     Route: 065
     Dates: start: 20180427, end: 20180427

REACTIONS (2)
  - Neuropathy peripheral [Recovering/Resolving]
  - White blood cell count decreased [Recovered/Resolved]

NARRATIVE: CASE EVENT DATE: 20180302
